FAERS Safety Report 13287801 (Version 2)
Quarter: 2017Q2

REPORT INFORMATION
  Report Type: Spontaneous
  Country: US (occurrence: US)
  Receive Date: 20170302
  Receipt Date: 20170525
  Transmission Date: 20170830
  Serious: Yes (Death, Hospitalization, Other)
  Sender: FDA-Public Use
  Company Number: US-SUN PHARMACEUTICAL INDUSTRIES LTD-2017US-134720

PATIENT
  Age: 13 Year
  Sex: Female

DRUGS (1)
  1. BUPROPION. [Suspect]
     Active Substance: BUPROPION
     Indication: PRODUCT USED FOR UNKNOWN INDICATION
     Dosage: 21000 MG, SINGLE
     Route: 048

REACTIONS (6)
  - Completed suicide [Fatal]
  - Areflexia [Fatal]
  - Coma [Fatal]
  - Electrocardiogram QT prolonged [Unknown]
  - Ventricular arrhythmia [Unknown]
  - Overdose [Fatal]
